FAERS Safety Report 23129663 (Version 1)
Quarter: 2023Q4

REPORT INFORMATION
  Report Type: Spontaneous
  Country: BE (occurrence: BE)
  Receive Date: 20231031
  Receipt Date: 20231031
  Transmission Date: 20240110
  Serious: Yes (Other)
  Sender: FDA-Public Use
  Company Number: BE-009507513-2310BEL009623

PATIENT
  Sex: Female

DRUGS (2)
  1. GARDASIL [Suspect]
     Active Substance: HUMAN PAPILLOMAVIRUS QUADRIVALENT (TYPES 6, 11, 16, AND 18) VACCINE, RECOMBINANT
     Indication: Prophylaxis
     Route: 030
     Dates: start: 2011, end: 2011
  2. PEMBROLIZUMAB [Suspect]
     Active Substance: PEMBROLIZUMAB
     Indication: Lung neoplasm malignant
     Dosage: 70 DOSES

REACTIONS (4)
  - Lung neoplasm malignant [Unknown]
  - Vaccination failure [Unknown]
  - Human papilloma virus test positive [Unknown]
  - Cervix warts [Unknown]

NARRATIVE: CASE EVENT DATE: 20230101
